FAERS Safety Report 5728232-0 (Version None)
Quarter: 2008Q2

REPORT INFORMATION
  Report Type: 
  Country: None (occurrence: None)
  Receive Date: 20080505
  Receipt Date: 20080505
  Transmission Date: 20081010
  Serious: Yes (Life-Threatening, Hospitalization, Other)
  Sender: FDA-Public Use
  Company Number: None

PATIENT
  Age: 26 Year
  Sex: Female

DRUGS (8)
  1. THYMOGLOBULIN [Suspect]
     Indication: PROPHYLAXIS AGAINST TRANSPLANT REJECTION
     Dosage: 125 DAY 1 IV
     Route: 042
     Dates: start: 20071211, end: 20071214
  2. THYMOGLOBULIN [Suspect]
     Indication: TRANSPLANT REJECTION
     Dosage: 100 Q24H FOR 3 DAYS IV
     Route: 042
     Dates: start: 20071222, end: 20071225
  3. MYFORTIC [Concomitant]
  4. MYCOPHENOLIC ACID [Concomitant]
  5. STEROIDS [Concomitant]
  6. SOLU-MEDROL [Concomitant]
  7. TACROLIMUS [Concomitant]
  8. PROGRAF [Concomitant]

REACTIONS (2)
  - DRUG EFFECT DECREASED [None]
  - KIDNEY TRANSPLANT REJECTION [None]
